FAERS Safety Report 10667424 (Version 3)
Quarter: 2015Q1

REPORT INFORMATION
  Report Type: Spontaneous
  Country: DE (occurrence: DE)
  Receive Date: 20141222
  Receipt Date: 20150116
  Transmission Date: 20150720
  Serious: Yes (Hospitalization, Other)
  Sender: FDA-Public Use
  Company Number: DE-009507513-1410DEU013156

PATIENT
  Age: 70 Year
  Sex: Male
  Weight: 90 kg

DRUGS (1)
  1. SIMVASTATIN. [Suspect]
     Active Substance: SIMVASTATIN
     Indication: CORONARY ARTERY DISEASE
     Dosage: 40 MG, QD
     Route: 048
     Dates: start: 2008, end: 20141006

REACTIONS (3)
  - Immune-mediated necrotising myopathy [Recovering/Resolving]
  - Acute kidney injury [Recovering/Resolving]
  - Rhabdomyolysis [Recovering/Resolving]

NARRATIVE: CASE EVENT DATE: 20141003
